FAERS Safety Report 7084784-2 (Version None)
Quarter: 2010Q4

REPORT INFORMATION
  Report Type: 
  Country: None (occurrence: None)
  Receive Date: 20101105
  Receipt Date: 20101027
  Transmission Date: 20110411
  Serious: Yes (Hospitalization)
  Sender: FDA-Public Use
  Company Number: JP-BIOGENIDEC-2009BI021489

PATIENT
  Age: 38 Year
  Sex: Female

DRUGS (24)
  1. AVONEX [Suspect]
     Indication: RELAPSING-REMITTING MULTIPLE SCLEROSIS
     Route: 030
     Dates: start: 20080109
  2. TEGRETOL [Concomitant]
     Indication: RELAPSING-REMITTING MULTIPLE SCLEROSIS
     Route: 048
     Dates: start: 20100225, end: 20100412
  3. METHYCOOL [Concomitant]
     Dates: start: 20071016
  4. PREDNISOLONE [Concomitant]
     Dates: start: 20071001
  5. PREDNISOLONE [Concomitant]
     Dates: start: 20071227
  6. SELBEX [Concomitant]
     Dates: start: 20071028, end: 20080123
  7. GASTER D [Concomitant]
     Dates: start: 20071028
  8. RIVOTRIL [Concomitant]
     Dates: start: 20071108
  9. BONALON [Concomitant]
     Dates: start: 20071111, end: 20080116
  10. ALFAROL [Concomitant]
     Dates: start: 20071115, end: 20080116
  11. FOSAMAC [Concomitant]
     Dates: start: 20080117
  12. DOPS [Concomitant]
     Dates: start: 20071206
  13. METLIGINE [Concomitant]
     Dates: start: 20071213, end: 20080910
  14. MUCOSTA [Concomitant]
     Dates: start: 20080125
  15. EBRANTIL [Concomitant]
     Dates: start: 20071208
  16. UBRETID [Concomitant]
     Dates: start: 20071208, end: 20080124
  17. UBRETID [Concomitant]
     Dates: start: 20080125, end: 20100427
  18. MAGMITT [Concomitant]
     Dates: start: 20071101
  19. LIPITOR [Concomitant]
     Dates: start: 20090204
  20. EPADEL S [Concomitant]
     Dates: start: 20091014
  21. PREDNISOLONE [Concomitant]
     Dates: start: 20071227
  22. SOLU-MEDROL [Concomitant]
     Dates: start: 20080613, end: 20080615
  23. SOLU-MEDROL [Concomitant]
     Dates: start: 20080705, end: 20100707
  24. SOLU-MEDROL [Concomitant]

REACTIONS (3)
  - INJECTION SITE INDURATION [None]
  - MULTIPLE SCLEROSIS RELAPSE [None]
  - TOXIC SKIN ERUPTION [None]
